FAERS Safety Report 10434107 (Version 2)
Quarter: 2016Q1

REPORT INFORMATION
  Report Type: Report from Study
  Country: GB (occurrence: GB)
  Receive Date: 20140905
  Receipt Date: 20160205
  Transmission Date: 20160525
  Serious: Yes (Other)
  Sender: FDA-Public Use
  Company Number: GB-ASTRAZENECA-2014SE64603

PATIENT
  Age: 21596 Day
  Sex: Male
  Weight: 90.2 kg

DRUGS (6)
  1. AZD6244 [Suspect]
     Active Substance: SELUMETINIB
     Indication: NON-SMALL CELL LUNG CANCER
     Route: 048
     Dates: start: 20140818
  2. AZD6244 [Suspect]
     Active Substance: SELUMETINIB
     Indication: NON-SMALL CELL LUNG CANCER
     Route: 048
     Dates: start: 20140811, end: 20140812
  3. VANDETANIB. [Suspect]
     Active Substance: VANDETANIB
     Indication: NON-SMALL CELL LUNG CANCER
     Route: 048
     Dates: start: 20140728, end: 20140731
  4. VANDETANIB. [Suspect]
     Active Substance: VANDETANIB
     Indication: NON-SMALL CELL LUNG CANCER
     Route: 048
     Dates: start: 20140811, end: 20140812
  5. VANDETANIB. [Suspect]
     Active Substance: VANDETANIB
     Indication: NON-SMALL CELL LUNG CANCER
     Route: 048
     Dates: start: 20140818
  6. VANDETANIB. [Suspect]
     Active Substance: VANDETANIB
     Indication: NON-SMALL CELL LUNG CANCER
     Route: 048
     Dates: start: 20140801, end: 20140810

REACTIONS (1)
  - Retinopathy [Recovered/Resolved]

NARRATIVE: CASE EVENT DATE: 20140812
